FAERS Safety Report 4450811-1 (Version None)
Quarter: 2004Q3

REPORT INFORMATION
  Report Type: 
  Country: None (occurrence: None)
  Receive Date: 20040916
  Receipt Date: 20011002
  Transmission Date: 20050211
  Serious: No
  Sender: FDA-Public Use
  Company Number: US-BRISTOL-MYERS SQUIBB COMPANY-11012218

PATIENT
  Age: 54 Year
  Sex: Female

DRUGS (18)
  1. STADOL [Suspect]
     Dosage: DURATION OF THERAPY:  6 TO 8 YEARS
  2. STADOL [Suspect]
     Dosage: DURATION OF THERAPY:  6 TO 8 YEARS
  3. OXYCODONE HCL + ACETAMINOPHEN [Concomitant]
  4. TRAZODONE HCL [Concomitant]
  5. PHENERGAN HCL [Concomitant]
  6. ATENOLOL [Concomitant]
  7. HYDROCODONE TARTRATE+ACETAMINOPHEN [Concomitant]
  8. AMBIEN [Concomitant]
  9. EFFEXOR XR [Concomitant]
  10. DIFLUCAN [Concomitant]
  11. PAXIL [Concomitant]
  12. LORAZEPAM [Concomitant]
  13. DOXYCYCLINE [Concomitant]
  14. WELLBUTRIN SR [Concomitant]
  15. SERZONE [Concomitant]
  16. LIPITOR [Concomitant]
  17. CYCLOBENZAPRINE HCL [Concomitant]
  18. PROMETHAZINE HCL [Concomitant]

REACTIONS (6)
  - AMNESIA [None]
  - CONFUSIONAL STATE [None]
  - DEPRESSION [None]
  - MOOD SWINGS [None]
  - SEXUAL DYSFUNCTION [None]
  - WEIGHT INCREASED [None]
